FAERS Safety Report 13641955 (Version 1)
Quarter: 2017Q2

REPORT INFORMATION
  Report Type: Spontaneous
  Country: US (occurrence: US)
  Receive Date: 20170609
  Receipt Date: 20170609
  Transmission Date: 20170830
  Serious: Yes (Hospitalization)
  Sender: FDA-Public Use
  Company Number: None

PATIENT
  Age: 68 Year
  Sex: Male
  Weight: 88.1 kg

DRUGS (1)
  1. ENOXAPARIN [Suspect]
     Active Substance: ENOXAPARIN
     Indication: PULMONARY EMBOLISM
     Route: 058
     Dates: start: 20170418, end: 20170425

REACTIONS (6)
  - Constipation [None]
  - Haemoglobin decreased [None]
  - Blood pressure systolic decreased [None]
  - Abdominal distension [None]
  - Bladder dilatation [None]
  - Haematuria [None]

NARRATIVE: CASE EVENT DATE: 20170425
